FAERS Safety Report 14681706 (Version 1)
Quarter: 2018Q1

REPORT INFORMATION
  Report Type: Spontaneous
  Country: US (occurrence: US)
  Receive Date: 20180326
  Receipt Date: 20180326
  Transmission Date: 20180509
  Serious: No
  Sender: FDA-Public Use
  Company Number: US-SHIRE-US201803423

PATIENT
  Sex: Female

DRUGS (4)
  1. PENTASA [Suspect]
     Active Substance: MESALAMINE
     Indication: CROHN^S DISEASE
     Dosage: 500 MG, 4X/DAY:QID
     Route: 065
  2. LIALDA [Suspect]
     Active Substance: MESALAMINE
     Indication: OFF LABEL USE
  3. PENTASA [Suspect]
     Active Substance: MESALAMINE
     Indication: OFF LABEL USE
  4. LIALDA [Suspect]
     Active Substance: MESALAMINE
     Indication: CROHN^S DISEASE
     Dosage: 1.2 G, 1X/DAY:QD
     Route: 065

REACTIONS (3)
  - Chromaturia [Recovered/Resolved]
  - Off label use [Unknown]
  - Insurance issue [Unknown]
